FAERS Safety Report 10367164 (Version 1)
Quarter: 2014Q3

REPORT INFORMATION
  Report Type: Spontaneous
  Country: IT (occurrence: IT)
  Receive Date: 20140807
  Receipt Date: 20140807
  Transmission Date: 20150326
  Serious: Yes (Hospitalization)
  Sender: FDA-Public Use
  Company Number: IT-BRISTOL-MYERS SQUIBB COMPANY-21249230

PATIENT
  Age: 78 Year
  Sex: Male

DRUGS (3)
  1. PROCORALAN [Concomitant]
     Active Substance: IVABRADINE
  2. COUMADIN [Suspect]
     Active Substance: WARFARIN SODIUM
     Dosage: 1DF:1 UNIT
     Route: 048
     Dates: start: 20130403, end: 20140403
  3. VASORETIC [Concomitant]
     Active Substance: ENALAPRIL MALEATE\HYDROCHLOROTHIAZIDE

REACTIONS (6)
  - Melaena [Recovered/Resolved]
  - International normalised ratio increased [Recovered/Resolved]
  - Presyncope [Recovered/Resolved]
  - Duodenal ulcer haemorrhage [Recovered/Resolved]
  - Dyspnoea [Recovered/Resolved]
  - Overdose [Recovered/Resolved]

NARRATIVE: CASE EVENT DATE: 201404
